FAERS Safety Report 11507052 (Version 1)
Quarter: 2015Q3

REPORT INFORMATION
  Report Type: Report from Study
  Country: US (occurrence: US)
  Receive Date: 20150915
  Receipt Date: 20150915
  Transmission Date: 20151125
  Serious: Yes (Other)
  Sender: FDA-Public Use
  Company Number: US-BIOGENIDEC-2015BI124703

PATIENT
  Age: 62 Year
  Sex: Female

DRUGS (8)
  1. PERCOCET [Concomitant]
     Active Substance: ACETAMINOPHEN\OXYCODONE HYDROCHLORIDE
  2. BUSPIRONE HCL [Concomitant]
     Active Substance: BUSPIRONE HYDROCHLORIDE
  3. BACLOFEN. [Concomitant]
     Active Substance: BACLOFEN
  4. CHANTIX [Concomitant]
     Active Substance: VARENICLINE TARTRATE
  5. MORPHINE SULFATE ER [Concomitant]
     Active Substance: MORPHINE SULFATE
  6. LYRICA [Concomitant]
     Active Substance: PREGABALIN
  7. CYMBALTA [Concomitant]
     Active Substance: DULOXETINE HYDROCHLORIDE
  8. TECFIDERA [Suspect]
     Active Substance: DIMETHYL FUMARATE
     Indication: MULTIPLE SCLEROSIS
     Route: 048
     Dates: start: 20140206

REACTIONS (2)
  - Terminal state [Unknown]
  - Leukopenia [Unknown]

NARRATIVE: CASE EVENT DATE: 20150901
